FAERS Safety Report 11155471 (Version 1)
Quarter: 2015Q2

REPORT INFORMATION
  Report Type: Spontaneous
  Country: US (occurrence: None)
  Receive Date: 20150601
  Receipt Date: 20150601
  Transmission Date: 20150821
  Serious: Yes (Life-Threatening)
  Sender: FDA-Public Use
  Company Number: None

PATIENT
  Age: 30 Year
  Sex: Male
  Weight: 73.2 kg

DRUGS (2)
  1. MIDAZOLAM [Suspect]
     Active Substance: MIDAZOLAM\MIDAZOLAM HYDROCHLORIDE
     Indication: SEDATION
     Dosage: 1-2 MG UD
     Route: 042
     Dates: start: 20140219, end: 20140219
  2. FENTANYL. [Suspect]
     Active Substance: FENTANYL
     Dosage: 12.5-50 MG
     Route: 042
     Dates: start: 20140219, end: 20140219

REACTIONS (4)
  - Hypotension [None]
  - Sinus tachycardia [None]
  - Electrocardiogram QT prolonged [None]
  - Dehydration [None]

NARRATIVE: CASE EVENT DATE: 20140219
